FAERS Safety Report 9431393 (Version 1)
Quarter: 2013Q3

REPORT INFORMATION
  Report Type: Spontaneous
  Country: JP (occurrence: JP)
  Receive Date: 20130730
  Receipt Date: 20130730
  Transmission Date: 20140515
  Serious: Yes (Death)
  Sender: FDA-Public Use
  Company Number: JP-COVIDIEN/TYCO HEALTHCARE/MALLINCKRODT-T201303853

PATIENT
  Age: 64 Year
  Sex: Female
  Weight: 39.1 kg

DRUGS (7)
  1. METHADONE [Suspect]
     Indication: CANCER PAIN
     Dosage: 15 MG, QD
     Dates: start: 20130427, end: 20130510
  2. HYPEN                              /00613801/ [Concomitant]
     Dosage: 400 MG, UNK
     Route: 048
     Dates: end: 20130511
  3. GABAPEN [Concomitant]
     Dosage: 600 MG, UNK
     Route: 048
     Dates: start: 20130428, end: 20130501
  4. RINDERON                           /00008501/ [Concomitant]
     Dosage: 1 MG, UNK
     Route: 048
     Dates: end: 20130501
  5. TAKEPRON [Concomitant]
     Dosage: 15 MG, UNK
     Route: 048
     Dates: end: 20130512
  6. MAGMITT [Concomitant]
     Dosage: 990 MG, UNK
     Route: 048
     Dates: end: 20130510
  7. BETAMETHASONE SODIUM PHOSPHATE [Concomitant]
     Dosage: 8 MG, UNK
     Route: 051
     Dates: start: 20130502, end: 20130514

REACTIONS (1)
  - Lung neoplasm malignant [Fatal]
